FAERS Safety Report 12490255 (Version 2)
Quarter: 2016Q3

REPORT INFORMATION
  Report Type: Spontaneous
  Country: US (occurrence: US)
  Receive Date: 20160622
  Receipt Date: 20160811
  Transmission Date: 20161109
  Serious: Yes (Hospitalization)
  Sender: FDA-Public Use
  Company Number: US-B.I. PHARMACEUTICALS,INC./RIDGEFIELD-2016-BI-39207BP

PATIENT
  Age: 79 Year
  Sex: Male

DRUGS (1)
  1. DULCOLAX (BISACODYL) [Suspect]
     Active Substance: BISACODYL
     Indication: CONSTIPATION PROPHYLAXIS
     Dosage: 10 MG
     Route: 048
     Dates: start: 2010, end: 2016

REACTIONS (9)
  - Head injury [Recovered/Resolved]
  - Incorrect drug administration duration [Recovered/Resolved]
  - Fall [Recovered/Resolved]
  - Dizziness [Not Recovered/Not Resolved]
  - Off label use [Recovered/Resolved]
  - Renal failure [Recovered/Resolved]
  - Vision blurred [Recovered/Resolved]
  - Back injury [Recovered/Resolved]
  - Cataract [Not Recovered/Not Resolved]

NARRATIVE: CASE EVENT DATE: 2010
